FAERS Safety Report 15596331 (Version 3)
Quarter: 2019Q1

REPORT INFORMATION
  Report Type: Report from Study
  Country: ID (occurrence: ID)
  Receive Date: 20181108
  Receipt Date: 20190312
  Transmission Date: 20190417
  Serious: Yes (Life-Threatening, Hospitalization, Disabling, Other)
  Sender: FDA-Public Use
  Company Number: ID-ASTRAZENECA-2018SF44941

PATIENT
  Sex: Male

DRUGS (2)
  1. TAGRISSO [Suspect]
     Active Substance: OSIMERTINIB
     Indication: NON-SMALL CELL LUNG CANCER
     Route: 048
     Dates: start: 20180621, end: 20181101
  2. TAGRISSO [Suspect]
     Active Substance: OSIMERTINIB
     Indication: NON-SMALL CELL LUNG CANCER
     Route: 048

REACTIONS (7)
  - Seizure [Unknown]
  - Dry skin [Unknown]
  - Dysphonia [Unknown]
  - Tongue biting [Unknown]
  - Cerebral haemorrhage [Unknown]
  - Dysarthria [Unknown]
  - Intracranial mass [Unknown]
